FAERS Safety Report 9464679 (Version 2)
Quarter: 2013Q3

REPORT INFORMATION
  Report Type: Spontaneous
  Country: ES (occurrence: ES)
  Receive Date: 20130819
  Receipt Date: 20130823
  Transmission Date: 20140515
  Serious: Yes (Other)
  Sender: FDA-Public Use
  Company Number: ES-VERTEX PHARMACEUTICALS INC-2013-008864

PATIENT
  Age: 55 Year
  Sex: Male

DRUGS (4)
  1. INCIVO [Suspect]
     Indication: HEPATITIS C VIRUS TEST POSITIVE
     Dosage: 1125 MG, BID, TABLET
     Route: 048
     Dates: start: 201304, end: 20130704
  2. INCIVO [Suspect]
     Indication: HEPATITIS C
  3. RIBAVIRIN [Suspect]
     Indication: HEPATITIS C VIRUS TEST POSITIVE
     Dosage: DOSAGE FORM: UNSPECIFIED
     Route: 048
     Dates: start: 201304, end: 20130709
  4. PEGINTRON [Suspect]
     Indication: HEPATITIS C
     Dosage: DOSAGE FORM: UNSPECIFIED, 120.0
     Route: 058
     Dates: start: 201304, end: 20130709

REACTIONS (5)
  - Skin exfoliation [Recovered/Resolved]
  - Oedema peripheral [Recovered/Resolved]
  - Rash maculo-papular [Recovered/Resolved]
  - Pyrexia [None]
  - Pruritus [None]
